FAERS Safety Report 16066354 (Version 1)
Quarter: 2019Q1

REPORT INFORMATION
  Report Type: Report from Study
  Country: US (occurrence: US)
  Receive Date: 20190313
  Receipt Date: 20190313
  Transmission Date: 20190418
  Serious: No
  Sender: FDA-Public Use
  Company Number: PHEH2019US010087

PATIENT
  Sex: Female

DRUGS (1)
  1. ENTRESTO [Suspect]
     Active Substance: SACUBITRIL\VALSARTAN
     Indication: PRODUCT USED FOR UNKNOWN INDICATION
     Route: 048

REACTIONS (8)
  - Heart rate increased [Unknown]
  - Asthenia [Unknown]
  - Chest discomfort [Unknown]
  - Paranoia [Unknown]
  - Confusional state [Unknown]
  - Cardiac disorder [Unknown]
  - Memory impairment [Unknown]
  - Feeling abnormal [Unknown]
